FAERS Safety Report 23984057 (Version 1)
Quarter: 2024Q2

REPORT INFORMATION
  Report Type: Report from Study
  Country: US (occurrence: US)
  Receive Date: 20240618
  Receipt Date: 20240618
  Transmission Date: 20240715
  Serious: No
  Sender: FDA-Public Use
  Company Number: US-AstraZeneca-CH-00644375A

PATIENT
  Sex: Male

DRUGS (1)
  1. ULTOMIRIS [Suspect]
     Active Substance: RAVULIZUMAB-CWVZ
     Indication: Myasthenia gravis
     Route: 065

REACTIONS (6)
  - Rash [Unknown]
  - Confusional state [Unknown]
  - Tremor [Unknown]
  - Muscle strength abnormal [Unknown]
  - Balance disorder [Unknown]
  - Myalgia [Not Recovered/Not Resolved]
